FAERS Safety Report 24340453 (Version 1)
Quarter: 2024Q3

REPORT INFORMATION
  Report Type: Spontaneous
  Country: JP (occurrence: JP)
  Receive Date: 20240919
  Receipt Date: 20240919
  Transmission Date: 20241016
  Serious: Yes (Hospitalization)
  Sender: EMD SERONO INC
  Company Number: JP-Merck Healthcare KGaA-2024031658

PATIENT
  Age: 57 Year
  Sex: Male

DRUGS (4)
  1. AVELUMAB [Suspect]
     Active Substance: AVELUMAB
     Indication: Bladder cancer
  2. PADCEV [Suspect]
     Active Substance: ENFORTUMAB VEDOTIN-EJFV
     Indication: Bladder cancer
     Dosage: 30 MG
     Route: 041
     Dates: start: 20240510
  3. CISPLATIN [Concomitant]
     Active Substance: CISPLATIN
     Indication: Bladder cancer
  4. GEMCITABINE HYDROCHLORIDE [Concomitant]
     Active Substance: GEMCITABINE HYDROCHLORIDE
     Indication: Bladder cancer

REACTIONS (3)
  - Wound [Recovered/Resolved]
  - Rash [Recovered/Resolved]
  - Pruritus [Unknown]
